FAERS Safety Report 9126929 (Version 1)
Quarter: 2013Q1

REPORT INFORMATION
  Report Type: Spontaneous
  Country: BR (occurrence: BR)
  Receive Date: 20130228
  Receipt Date: 20130228
  Transmission Date: 20140127
  Serious: Yes (Other)
  Sender: FDA-Public Use
  Company Number: PHHY2013BR017895

PATIENT
  Age: 74 None
  Sex: Female

DRUGS (9)
  1. XOLAIR [Suspect]
     Indication: ASTHMA
     Dosage: 300 MG, / 15 DAYS
     Dates: start: 20110201
  2. FORASEQ [Suspect]
     Indication: ASTHMA
     Dosage: 2 DF, QD EACH TREATMENT
  3. DIOVAN HCT [Suspect]
     Indication: HYPERTENSION
     Dosage: 1 DF, QD
     Route: 048
  4. PRELONE [Concomitant]
     Dosage: UNK
  5. OSTEONUTRI [Concomitant]
     Dosage: UNK
  6. DEPURA [Concomitant]
     Dosage: UNK UKN, UNK
  7. SODIUM HYDROXIDE [Concomitant]
     Dosage: UNK
  8. BEROTEC [Concomitant]
     Dosage: UNK
  9. PROLIEF [Concomitant]
     Dosage: UNK

REACTIONS (8)
  - Renal vein occlusion [Recovering/Resolving]
  - Dyspnoea [Recovering/Resolving]
  - Wheezing [Recovering/Resolving]
  - Asthma [Recovering/Resolving]
  - Hypotension [Recovering/Resolving]
  - Renal disorder [Recovering/Resolving]
  - Oropharyngeal pain [Recovering/Resolving]
  - Increased upper airway secretion [Recovering/Resolving]
